FAERS Safety Report 17261914 (Version 1)
Quarter: 2020Q1

REPORT INFORMATION
  Report Type: Spontaneous
  Country: US (occurrence: US)
  Receive Date: 20200110
  Receipt Date: 20200110
  Transmission Date: 20200409
  Serious: Yes (Death)
  Sender: FDA-Public Use
  Company Number: None

PATIENT
  Age: 61 Year
  Sex: Male

DRUGS (9)
  1. LIDO/PRILOCN [Concomitant]
  2. LEVOFLOXACIN. [Concomitant]
     Active Substance: LEVOFLOXACIN
  3. BENZONATATE. [Concomitant]
     Active Substance: BENZONATATE
  4. POT CHLORIDE [Concomitant]
     Active Substance: POTASSIUM CHLORIDE
  5. ZARXIO [Suspect]
     Active Substance: FILGRASTIM-SNDZ
     Indication: RECTAL CANCER
     Route: 058
     Dates: start: 20190220, end: 20200103
  6. ENOXAPARIN [Concomitant]
     Active Substance: ENOXAPARIN
  7. LORAZEPAM. [Concomitant]
     Active Substance: LORAZEPAM
  8. DEXAMETHASON [Concomitant]
     Active Substance: DEXAMETHASONE
  9. DIPHEN/ATROP [Concomitant]
     Active Substance: ATROPINE SULFATE\DIPHENOXYLATE

REACTIONS (1)
  - Death [None]

NARRATIVE: CASE EVENT DATE: 20200103
